FAERS Safety Report 7272052-5 (Version None)
Quarter: 2011Q1

REPORT INFORMATION
  Report Type: 
  Country: None (occurrence: None)
  Receive Date: 20110131
  Receipt Date: 20110131
  Transmission Date: 20110831
  Serious: Yes (Other)
  Sender: FDA-Public Use
  Company Number: None

PATIENT
  Sex: Female
  Weight: 99.7913 kg

DRUGS (1)
  1. CYCLOSET [Suspect]
     Indication: BLOOD GLUCOSE INCREASED
     Dosage: 1 TABLET -0.8MG- ONCE PO
     Route: 048
     Dates: start: 20110127, end: 20110127

REACTIONS (1)
  - VISUAL FIELD DEFECT [None]
